FAERS Safety Report 9419097 (Version 3)
Quarter: 2013Q4

REPORT INFORMATION
  Report Type: Report from Study
  Country: US (occurrence: US)
  Receive Date: 20130725
  Receipt Date: 20131228
  Transmission Date: 20140711
  Serious: Yes (Other)
  Sender: FDA-Public Use
  Company Number: US-ALEXION-A201301668

PATIENT
  Age: 57 Year
  Sex: Female
  Weight: 58.5 kg

DRUGS (12)
  1. SOLIRIS [Suspect]
     Indication: PAROXYSMAL NOCTURNAL HAEMOGLOBINURIA
     Dosage: 900 MG, Q2W
     Route: 042
  2. CAPTOPRIL [Concomitant]
     Dosage: 25 MG, TID
     Route: 048
  3. CEPHALEXIN [Concomitant]
     Dosage: 250 MG, QD
     Route: 048
  4. COLACE [Concomitant]
     Dosage: 100 MG, BID
     Route: 048
  5. CYANOCOBALAMIN [Concomitant]
     Dosage: 1000 ?G, QMONTH
     Route: 058
  6. ERGOCALCIFEROL [Concomitant]
     Dosage: 50000 UT, QW
     Route: 048
  7. FLORASTOR [Concomitant]
     Dosage: 250 MG, BID
     Route: 048
  8. FOLIC ACID [Concomitant]
     Dosage: 5 MG, QD
     Route: 048
  9. METOPROLOL [Concomitant]
     Dosage: 25 MG, BID
     Route: 048
  10. OMEPRAZOLE [Concomitant]
     Dosage: 20 MG, QD
     Route: 048
  11. NEPHROCAPS [Concomitant]
     Dosage: 1 CAPSULE, QD
     Route: 048
  12. CYANOCOBALAMIN [Concomitant]
     Dosage: 250 ?G, QD
     Route: 048

REACTIONS (5)
  - Post procedural complication [Recovered/Resolved]
  - Cholelithiasis [Recovered/Resolved]
  - Transfusion [Unknown]
  - Incision site abscess [Recovered/Resolved]
  - Abdominal pain [Unknown]
